FAERS Safety Report 7658210-6 (Version None)
Quarter: 2011Q3

REPORT INFORMATION
  Report Type: 
  Country: None (occurrence: None)
  Receive Date: 20110805
  Receipt Date: 20110726
  Transmission Date: 20111222
  Serious: Yes (Other)
  Sender: FDA-Public Use
  Company Number: US-JNJFOC-20110801405

PATIENT
  Age: 70 Year
  Sex: Female
  Weight: 90.72 kg

DRUGS (14)
  1. TOPIRAMATE [Concomitant]
     Indication: TREMOR
     Route: 065
     Dates: start: 20100101
  2. LOSARTAN POTASSIUM [Concomitant]
     Indication: HYPERTENSION
     Route: 065
  3. VENLAFAXINE [Concomitant]
     Indication: ANTIDEPRESSANT THERAPY
     Route: 065
     Dates: start: 20090101
  4. IMODIUM MULTI-SYMPTOM RELIEF [Suspect]
     Indication: DIARRHOEA
     Route: 048
     Dates: start: 20110724, end: 20110724
  5. ASPIRIN [Suspect]
     Indication: CARDIAC DISORDER
     Route: 065
     Dates: end: 20110723
  6. BUMEX [Concomitant]
     Indication: OEDEMA PERIPHERAL
     Route: 065
  7. HYDROCHLOROTHIAZIDE [Concomitant]
     Indication: OEDEMA
     Route: 065
  8. GLIMEPIRIDE [Concomitant]
     Indication: DIABETES MELLITUS
     Route: 065
  9. IMODIUM MULTI-SYMPTOM RELIEF [Suspect]
     Route: 048
  10. METFORMIN HCL [Concomitant]
     Indication: DIABETES MELLITUS
     Route: 065
  11. HYDROCHLOROTHIAZIDE [Concomitant]
     Indication: HYPERTENSION
     Route: 065
  12. METOPROLOL TARTRATE [Concomitant]
     Indication: HYPERTENSION
     Route: 065
  13. KLOR-CON [Concomitant]
     Indication: MINERAL SUPPLEMENTATION
     Route: 065
  14. ENABLEX [Concomitant]
     Indication: URINARY INCONTINENCE
     Route: 065

REACTIONS (4)
  - HAEMATOCHEZIA [None]
  - CHOKING [None]
  - PRODUCT SIZE ISSUE [None]
  - DYSPHAGIA [None]
